FAERS Safety Report 9943225 (Version 2)
Quarter: 2014Q1

REPORT INFORMATION
  Report Type: Report from Study
  Country: DK (occurrence: DK)
  Receive Date: 20140303
  Receipt Date: 20140311
  Transmission Date: 20141002
  Serious: Yes (Disabling)
  Sender: FDA-Public Use
  Company Number: DK-GLAXOSMITHKLINE-B0971830A

PATIENT
  Age: 59 Year
  Sex: Female
  Weight: 73.8 kg

DRUGS (4)
  1. LAPATINIB [Suspect]
     Indication: BREAST CANCER
     Dosage: 1500MG PER DAY
     Route: 048
     Dates: start: 20080813, end: 20080903
  2. TRASTUZUMAB [Suspect]
     Indication: BREAST CANCER
     Route: 042
     Dates: start: 20080909
  3. EPIRUBICIN [Suspect]
     Indication: BREAST CANCER
     Route: 042
     Dates: start: 20080206, end: 20080319
  4. RADIOTHERAPY [Suspect]
     Indication: BREAST CANCER
     Dates: start: 2008, end: 2008

REACTIONS (1)
  - Cardiomyopathy [Not Recovered/Not Resolved]
